FAERS Safety Report 24164760 (Version 2)
Quarter: 2024Q3

REPORT INFORMATION
  Report Type: Report from Study
  Country: CA (occurrence: CA)
  Receive Date: 20240801
  Receipt Date: 20240930
  Transmission Date: 20241017
  Serious: Yes (Death)
  Sender: BOEHRINGER INGELHEIM
  Company Number: CA-BoehringerIngelheim-2024-BI-043314

PATIENT
  Age: 83 Year
  Sex: Female

DRUGS (1)
  1. OFEV [Suspect]
     Active Substance: NINTEDANIB
     Indication: Interstitial lung disease
     Route: 048

REACTIONS (1)
  - Interstitial lung disease [Fatal]
